FAERS Safety Report 7583086-5 (Version None)
Quarter: 2011Q2

REPORT INFORMATION
  Report Type: 
  Country: None (occurrence: None)
  Receive Date: 20110630
  Receipt Date: 20110622
  Transmission Date: 20111010
  Serious: Yes (Death)
  Sender: FDA-Public Use
  Company Number: IT-ELI_LILLY_AND_COMPANY-IT201106006422

PATIENT
  Sex: Female

DRUGS (1)
  1. GEMCITABINE HYDROCHLORIDE [Suspect]
     Dosage: UNK, QOD
     Route: 065

REACTIONS (3)
  - INFECTION [None]
  - PANCYTOPENIA [None]
  - DYSPNOEA [None]
